FAERS Safety Report 5016218-3 (Version None)
Quarter: 2006Q2

REPORT INFORMATION
  Report Type: 
  Country: None (occurrence: None)
  Receive Date: 20060414
  Receipt Date: 20060124
  Transmission Date: 20061013
  Serious: No
  Sender: FDA-Public Use
  Company Number: 2006SP000409

PATIENT
  Age: 30 Year
  Sex: Female
  Weight: 96.1626 kg

DRUGS (4)
  1. LUNESTA [Suspect]
     Indication: INSOMNIA
     Dosage: 3MG; HS; ORAL
     Route: 048
     Dates: start: 20060101
  2. NEURONTIN [Concomitant]
  3. GLUCOVANCE [Concomitant]
  4. MULTIVITAMIN [Concomitant]

REACTIONS (1)
  - DYSGEUSIA [None]
